FAERS Safety Report 10610342 (Version 1)
Quarter: 2014Q4

REPORT INFORMATION
  Report Type: Spontaneous
  Country: NL (occurrence: None)
  Receive Date: 20141124
  Receipt Date: 20141124
  Transmission Date: 20150529
  Serious: Yes (Hospitalization)
  Sender: FDA-Public Use
  Company Number: IMP_08213_2014

PATIENT
  Sex: Male
  Weight: 60 kg

DRUGS (10)
  1. GEMFIBROZIL. [Suspect]
     Active Substance: GEMFIBROZIL
     Indication: HYPERLIPIDAEMIA
  2. TENOFOVIR [Suspect]
     Active Substance: TENOFOVIR
     Indication: HIV INFECTION
  3. AMITRIPTYLINE [Concomitant]
     Active Substance: AMITRIPTYLINE
  4. TAMSULOSIN [Concomitant]
     Active Substance: TAMSULOSIN
  5. ROSUVASTATIN [Suspect]
     Active Substance: ROSUVASTATIN
     Indication: HYPERLIPIDAEMIA
  6. GABAPENTIN. [Concomitant]
     Active Substance: GABAPENTIN
  7. LOPINAVIR W/RITONAVIR [Suspect]
     Active Substance: LOPINAVIR\RITONAVIR
     Indication: HIV INFECTION
  8. ABACAVIR [Suspect]
     Active Substance: ABACAVIR
     Indication: HIV INFECTION
  9. CIPROFLOXACIN. [Suspect]
     Active Substance: CIPROFLOXACIN
     Indication: URINARY TRACT INFECTION
  10. ASPIRIN. [Concomitant]
     Active Substance: ASPIRIN

REACTIONS (12)
  - Dyspnoea exertional [None]
  - Blood potassium decreased [None]
  - Fatigue [None]
  - Blood sodium decreased [None]
  - Haematuria [None]
  - Angiopathy [None]
  - Pallor [None]
  - Rhabdomyolysis [None]
  - Drug interaction [None]
  - Abdominal pain [None]
  - Renal failure [None]
  - Urinary tract infection [None]
